FAERS Safety Report 19229225 (Version 1)
Quarter: 2021Q2

REPORT INFORMATION
  Report Type: Spontaneous
  Country: US (occurrence: US)
  Receive Date: 20210506
  Receipt Date: 20210506
  Transmission Date: 20210717
  Serious: No
  Sender: FDA-Public Use
  Company Number: US-SA-2021SA144815

PATIENT
  Sex: Male

DRUGS (1)
  1. XYZAL [Suspect]
     Active Substance: LEVOCETIRIZINE DIHYDROCHLORIDE
     Route: 065

REACTIONS (5)
  - Behaviour disorder [Recovering/Resolving]
  - Constipation [Recovering/Resolving]
  - Depressed mood [Recovering/Resolving]
  - Emotional disorder [Recovering/Resolving]
  - Aggression [Recovering/Resolving]
